FAERS Safety Report 21574687 (Version 1)
Quarter: 2022Q4

REPORT INFORMATION
  Report Type: Report from Study
  Country: PR (occurrence: PR)
  Receive Date: 20221109
  Receipt Date: 20221109
  Transmission Date: 20230112
  Serious: No
  Sender: FDA-Public Use
  Company Number: PR-ABBVIE-22K-131-4515246-00

PATIENT
  Sex: Female
  Weight: 137 kg

DRUGS (5)
  1. HUMIRA [Suspect]
     Active Substance: ADALIMUMAB
     Indication: Rheumatoid arthritis
     Dosage: STRENGTH- 40 MG
     Route: 058
  2. HUMIRA [Suspect]
     Active Substance: ADALIMUMAB
  3. Covid-19 Vaccine [Concomitant]
     Indication: COVID-19 immunisation
     Dosage: 1ST DOSE?FREQUENCY-ONE IN ONCE
     Route: 030
     Dates: start: 20220520, end: 20220520
  4. Covid-19 Vaccine [Concomitant]
     Indication: COVID-19 immunisation
     Dosage: 3RD DOSE?FREQUENCY-ONE IN ONCE
     Route: 030
     Dates: start: 20220110, end: 20220110
  5. Covid-19 Vaccine [Concomitant]
     Indication: COVID-19 immunisation
     Dosage: 2ND DOSE?FREQUENCY-ONE IN ONCE
     Route: 030
     Dates: start: 20210617, end: 20210617

REACTIONS (6)
  - SARS-CoV-2 test positive [Recovered/Resolved with Sequelae]
  - Chills [Recovered/Resolved with Sequelae]
  - Stress [Unknown]
  - Pyrexia [Recovered/Resolved with Sequelae]
  - Dyspnoea [Recovered/Resolved with Sequelae]
  - Pain [Not Recovered/Not Resolved]

NARRATIVE: CASE EVENT DATE: 20220101
